FAERS Safety Report 4870803-8 (Version None)
Quarter: 2006Q1

REPORT INFORMATION
  Report Type: 
  Country: None (occurrence: None)
  Receive Date: 20060103
  Receipt Date: 20051222
  Transmission Date: 20060701
  Serious: Yes (Hospitalization)
  Sender: FDA-Public Use
  Company Number: FR-BRISTOL-MYERS SQUIBB COMPANY-13228465

PATIENT
  Sex: Male

DRUGS (3)
  1. ABILIFY [Suspect]
     Indication: SCHIZOPHRENIA
     Route: 048
     Dates: start: 20050901, end: 20051220
  2. NOZINAN [Suspect]
     Indication: ANXIETY
     Route: 048
     Dates: start: 20050901
  3. SERESTA [Suspect]
     Indication: ANXIETY
     Route: 048
     Dates: start: 20050901, end: 20051220

REACTIONS (4)
  - DELUSION [None]
  - HALLUCINATION, AUDITORY [None]
  - INSOMNIA [None]
  - PSYCHIATRIC SYMPTOM [None]
